FAERS Safety Report 15372667 (Version 4)
Quarter: 2018Q4

REPORT INFORMATION
  Report Type: Spontaneous
  Country: GB (occurrence: GB)
  Receive Date: 20180912
  Receipt Date: 20181106
  Transmission Date: 20190204
  Serious: Yes (Death, Other)
  Sender: FDA-Public Use
  Company Number: GB-009507513-1609GBR012120

PATIENT
  Sex: Female

DRUGS (1)
  1. KEYTRUDA [Suspect]
     Active Substance: PEMBROLIZUMAB
     Indication: METASTATIC MALIGNANT MELANOMA
     Dosage: 1 INFUSION, CYCLICAL, CYCLE 1
     Route: 042

REACTIONS (3)
  - Iridocyclitis [Recovered/Resolved]
  - Death [Fatal]
  - Oncologic complication [Unknown]
